FAERS Safety Report 4575980-4 (Version None)
Quarter: 2005Q1

REPORT INFORMATION
  Report Type: 
  Country: None (occurrence: None)
  Receive Date: 20050204
  Receipt Date: 20050121
  Transmission Date: 20050727
  Serious: Yes (Death)
  Sender: FDA-Public Use
  Company Number: GB-SHR-03-002781

PATIENT
  Age: 21 Year
  Sex: Female

DRUGS (2)
  1. YASMIN [Suspect]
     Indication: ORAL CONTRACEPTION
     Dosage: 1 TAB, 1X /DAY, ORAL
     Route: 048
     Dates: start: 20020613
  2. OXYTETRACYCLINE [Concomitant]

REACTIONS (1)
  - SUDDEN DEATH [None]
